FAERS Safety Report 5974355-0 (Version None)
Quarter: 2008Q4

REPORT INFORMATION
  Report Type: 
  Country: None (occurrence: None)
  Receive Date: 20081128
  Receipt Date: 20081124
  Transmission Date: 20090506
  Serious: Yes (Hospitalization)
  Sender: FDA-Public Use
  Company Number: 2008SP019732

PATIENT
  Age: 58 Year
  Sex: Female

DRUGS (10)
  1. PEG-INTRON [Suspect]
     Indication: HEPATITIS C
     Dosage: 120 MCG;QW;SC
     Route: 058
     Dates: start: 20080729, end: 20080827
  2. REBETOL [Suspect]
     Indication: HEPATITIS C
     Dosage: 1200 MG;QD;PO
     Route: 048
     Dates: start: 20080729, end: 20080827
  3. METOPROLOL TARTRATE [Concomitant]
  4. RANITIDINE [Concomitant]
  5. OXYCONTIN [Concomitant]
  6. OXYCODONE HCL [Concomitant]
  7. HYDROCODONE BITARTRATE [Concomitant]
  8. FLUOXETINE [Concomitant]
  9. NORTRIPTYLINE HCL [Concomitant]
  10. DIAZEPAM [Concomitant]

REACTIONS (11)
  - AGITATION [None]
  - BACK INJURY [None]
  - CONFUSIONAL STATE [None]
  - DELIRIUM [None]
  - DYSPNOEA EXERTIONAL [None]
  - FALL [None]
  - HALLUCINATION [None]
  - HEAD INJURY [None]
  - NECK PAIN [None]
  - OVERDOSE [None]
  - URINARY TRACT INFECTION [None]
